FAERS Safety Report 16759222 (Version 1)
Quarter: 2019Q3

REPORT INFORMATION
  Report Type: Spontaneous
  Country: BR (occurrence: BR)
  Receive Date: 20190830
  Receipt Date: 20190830
  Transmission Date: 20191005
  Serious: Yes (Death, Hospitalization, Other)
  Sender: FDA-Public Use
  Company Number: BR-AMGEN-BRASP2019137536

PATIENT
  Age: 65 Year
  Sex: Female
  Weight: 45 kg

DRUGS (24)
  1. DOMPERIDONA [Concomitant]
     Dosage: 10 MILLIGRAM
  2. LASIX [Concomitant]
     Active Substance: FUROSEMIDE
     Dosage: UNK UNK, QD, (AAS 1 PER DAY)
  3. TECNOTECAN [Concomitant]
     Active Substance: IRINOTECAN HYDROCHLORIDE
     Indication: COLORECTAL CANCER
     Dosage: UNK, (206, 208 MILLIGRAM) (SF 250ML - 90 MINUTES)
     Route: 042
     Dates: start: 20170220
  4. CRANBERRY CONCENTRATE [Concomitant]
     Active Substance: CRANBERRY CONCENTRATE
     Dosage: UNK, (1 SACHET PER DAY)
  5. DEXAMETHASONE. [Concomitant]
     Active Substance: DEXAMETHASONE
     Dosage: 4 MILLIGRAM, (1 PILL 12/12 HRS PER 3 DAYS AFTER THE CHEMOTHERAPY)
  6. FERROUS SULFATE. [Concomitant]
     Active Substance: FERROUS SULFATE
     Dosage: UNK, (1 PILL T)
  7. CALCIUM CARBONATE AND VITAMIN D [Concomitant]
     Active Substance: CALCIUM CARBONATE\VITAMIN D
     Dosage: UNK UNK, QD, (1 CP M)
  8. ZOLPIDEM [Concomitant]
     Active Substance: ZOLPIDEM TARTRATE
     Dosage: 10 MILLIGRAM, QD, (AT NIGHT)
  9. ALENDRONATE SODIUM. [Concomitant]
     Active Substance: ALENDRONATE SODIUM
     Dosage: 70 MILLIGRAM, (1 PILL)
  10. VECTIBIX [Suspect]
     Active Substance: PANITUMUMAB
     Indication: METASTASES TO LIVER
     Dosage: 270 MILLIGRAM, (SF 100ML - 1 HOUR)
     Route: 042
     Dates: start: 20180622
  11. OMEPRAZOLE. [Concomitant]
     Active Substance: OMEPRAZOLE
     Dosage: 20 MILLIGRAM, QD, (1 PILL FAST)
  12. DIGESAN [Concomitant]
     Active Substance: BROMOPRIDE
  13. VECTIBIX [Suspect]
     Active Substance: PANITUMUMAB
     Indication: METASTASES TO PERITONEUM
  14. AMLODIPINO [Concomitant]
     Active Substance: AMLODIPINE BESYLATE
     Dosage: 5 MILLIGRAM, QD
  15. LIPITOR [Concomitant]
     Active Substance: ATORVASTATIN CALCIUM
     Dosage: UNK UNK, QD
  16. ATENOLOL. [Concomitant]
     Active Substance: ATENOLOL
     Dosage: 50 MILLIGRAM, QD
  17. VITAMINA E [Concomitant]
     Dosage: UNK UNK, QD
  18. ATLANSIL [Concomitant]
     Active Substance: AMIODARONE
     Dosage: UNK UNK, QD
  19. TECNOTECAN [Concomitant]
     Active Substance: IRINOTECAN HYDROCHLORIDE
     Indication: METASTASES TO LIVER
  20. VONAU [Concomitant]
     Active Substance: ONDANSETRON HYDROCHLORIDE
     Dosage: 8 MILLIGRAM, (1 PILL 8/8 HRS PER 3 DAYS AFTER THE CHEMOTHERAPY)
  21. CONCOR [Concomitant]
     Active Substance: BISOPROLOL FUMARATE
     Dosage: UNK UNK, QD
  22. VECTIBIX [Suspect]
     Active Substance: PANITUMUMAB
     Indication: COLORECTAL CANCER
  23. TECNOTECAN [Concomitant]
     Active Substance: IRINOTECAN HYDROCHLORIDE
     Indication: METASTASES TO PERITONEUM
  24. SULFATO FERROSO [Concomitant]
     Dosage: UNK, (1 PILL)

REACTIONS (10)
  - Diarrhoea [Unknown]
  - Condition aggravated [Unknown]
  - Unevaluable event [Unknown]
  - Death [Fatal]
  - Septic shock [Unknown]
  - Cardiogenic shock [Unknown]
  - Acute kidney injury [Unknown]
  - Escherichia test positive [Unknown]
  - Neutropenia [Unknown]
  - Vomiting [Unknown]

NARRATIVE: CASE EVENT DATE: 2018
